FAERS Safety Report 15306777 (Version 1)
Quarter: 2018Q3

REPORT INFORMATION
  Report Type: Spontaneous
  Country: US (occurrence: US)
  Receive Date: 20180810
  Receipt Date: 20180810
  Transmission Date: 20181010
  Serious: No
  Sender: FDA-Public Use
  Company Number: None

PATIENT
  Age: 31 Year
  Sex: Male

DRUGS (1)
  1. TIVICAY [Suspect]
     Active Substance: DOLUTEGRAVIR SODIUM

REACTIONS (3)
  - Rash [None]
  - Drug effect incomplete [None]
  - Skin exfoliation [None]

NARRATIVE: CASE EVENT DATE: 20160806
